FAERS Safety Report 6256309-2 (Version None)
Quarter: 2009Q3

REPORT INFORMATION
  Report Type: 
  Country: None (occurrence: None)
  Receive Date: 20090706
  Receipt Date: 20090626
  Transmission Date: 20100115
  Serious: Yes (Hospitalization, Other)
  Sender: FDA-Public Use
  Company Number: PHHO2008DK10379

PATIENT
  Sex: Female
  Weight: 77 kg

DRUGS (3)
  1. ALISKIREN ALI+TAB [Suspect]
     Indication: ACUTE MYOCARDIAL INFARCTION
     Dosage: 30 MG, DAILY
     Route: 048
     Dates: start: 20080630, end: 20080704
  2. CARVEDILOL [Concomitant]
  3. DIURETICS [Concomitant]

REACTIONS (3)
  - ANGINA PECTORIS [None]
  - BODY TEMPERATURE DECREASED [None]
  - HYPOTENSION [None]
